FAERS Safety Report 12297992 (Version 1)
Quarter: 2016Q2

REPORT INFORMATION
  Report Type: Spontaneous
  Country: PL (occurrence: PL)
  Receive Date: 20160422
  Receipt Date: 20160422
  Transmission Date: 20160815
  Serious: Yes (Life-Threatening, Hospitalization)
  Sender: FDA-Public Use
  Company Number: ALCN2016PL002646

PATIENT
  Age: 60 Year
  Sex: Female
  Weight: 75 kg

DRUGS (1)
  1. FLUORESCITE [Suspect]
     Active Substance: FLUORESCEIN SODIUM
     Indication: ANGIOGRAM
     Dosage: 1 DF, ONCE/SINGLE
     Route: 065
     Dates: start: 20160302, end: 20160302

REACTIONS (6)
  - Cardiac arrest [Recovered/Resolved]
  - Tongue disorder [Recovered/Resolved]
  - Cardiopulmonary failure [Recovered/Resolved]
  - Anaphylactic reaction [Recovered/Resolved]
  - Asthenia [Recovered/Resolved]
  - Blood pressure systolic decreased [Recovered/Resolved]

NARRATIVE: CASE EVENT DATE: 20160302
